FAERS Safety Report 16737082 (Version 2)
Quarter: 2019Q3

REPORT INFORMATION
  Report Type: Report from Study
  Country: IT (occurrence: IT)
  Receive Date: 20190823
  Receipt Date: 20190916
  Transmission Date: 20191005
  Serious: Yes (Hospitalization)
  Sender: FDA-Public Use
  Company Number: PHHY2019IT193419

PATIENT
  Age: 9 Year
  Sex: Female

DRUGS (2)
  1. OMNITROPE [Suspect]
     Active Substance: SOMATROPIN
     Indication: GROWTH HORMONE DEFICIENCY
     Dosage: UNK UNK, QD (5 MG/ 1.5 ML SOLUTION FOR INJECTION)
     Route: 058
     Dates: start: 20181011, end: 20190619
  2. OMNITROPE [Suspect]
     Active Substance: SOMATROPIN
     Dosage: 5 MG, UNK
     Route: 058
     Dates: start: 20190828

REACTIONS (3)
  - Generalised tonic-clonic seizure [Recovering/Resolving]
  - Cortisol decreased [Recovering/Resolving]
  - Hyperventilation [Unknown]

NARRATIVE: CASE EVENT DATE: 20190409
